FAERS Safety Report 13233327 (Version 2)
Quarter: 2017Q1

REPORT INFORMATION
  Report Type: Report from Study
  Country: MY (occurrence: MY)
  Receive Date: 20170215
  Receipt Date: 20170224
  Transmission Date: 20170428
  Serious: Yes (Life-Threatening, Hospitalization)
  Sender: FDA-Public Use
  Company Number: MY-ROCHE-1406249

PATIENT
  Age: 63 Year
  Sex: Female
  Weight: 46 kg

DRUGS (11)
  1. TRAMADOL. [Concomitant]
     Active Substance: TRAMADOL
     Indication: PROCEDURAL PAIN
     Dosage: PRN
     Route: 048
     Dates: start: 20140122
  2. TRASTUZUMAB [Suspect]
     Active Substance: TRASTUZUMAB
     Indication: HER-2 POSITIVE GASTRIC CANCER
     Dosage: LOADING DOSE: 8 MG/KG; DATE OF MOST RECENT DOSE OF TRASTUZUMAB: 30/APR/2014
     Route: 042
     Dates: start: 20140430
  3. PERTUZUMAB [Suspect]
     Active Substance: PERTUZUMAB
     Indication: HER-2 POSITIVE GASTRIC CANCER
     Dosage: DATE OF MOST RECENT DOSE OF BLINDED PERTUZUMAB: 30/APR/2014
     Route: 042
     Dates: start: 20140430
  4. METFORMIN [Concomitant]
     Active Substance: METFORMIN HYDROCHLORIDE
     Indication: DIABETES MELLITUS
     Route: 048
     Dates: start: 2003
  5. LOVASTATIN. [Concomitant]
     Active Substance: LOVASTATIN
     Indication: HYPERTENSION
     Route: 048
     Dates: start: 2003
  6. PERINDOPRIL [Concomitant]
     Active Substance: PERINDOPRIL
     Indication: HYPERTENSION
     Route: 048
     Dates: start: 2003
  7. AMILORIDE/HYDROCHLOROTHIAZIDE [Concomitant]
     Active Substance: AMILORIDE HYDROCHLORIDE\HYDROCHLOROTHIAZIDE
     Route: 048
     Dates: start: 2003
  8. CISPLATIN. [Suspect]
     Active Substance: CISPLATIN
     Indication: HER-2 POSITIVE GASTRIC CANCER
     Dosage: DATE OF MOST RECENT DOSE: 01/MAY/2014
     Route: 042
     Dates: start: 20140501
  9. OMEPRAZOLE. [Concomitant]
     Active Substance: OMEPRAZOLE
     Indication: DYSPEPSIA
     Route: 048
     Dates: start: 20140411
  10. AMLODIPINE [Concomitant]
     Active Substance: AMLODIPINE BESYLATE
     Indication: HYPERTENSION
     Route: 048
     Dates: start: 2003
  11. CAPECITABINE. [Suspect]
     Active Substance: CAPECITABINE
     Indication: HER-2 POSITIVE GASTRIC CANCER
     Dosage: ON 14/MAY/2014, MOST RECENT DOSE GIVEN PRIOR TO HYPOKALAEMIA.?DATE OF MOST RECENT DOSE OF CAPECITABI
     Route: 048
     Dates: start: 20140430

REACTIONS (2)
  - Diarrhoea [Recovered/Resolved]
  - Hypokalaemia [Recovered/Resolved]

NARRATIVE: CASE EVENT DATE: 20140504
